FAERS Safety Report 4940548-4 (Version None)
Quarter: 2006Q1

REPORT INFORMATION
  Report Type: 
  Country: None (occurrence: None)
  Receive Date: 20060112
  Receipt Date: 20051115
  Transmission Date: 20060701
  Serious: Yes (Other)
  Sender: FDA-Public Use
  Company Number: 349559

PATIENT
  Age: 57 Year
  Sex: Male
  Weight: 70.8 kg

DRUGS (1)
  1. FUZEON [Suspect]
     Indication: DRUG USE FOR UNKNOWN INDICATION
     Dosage: OTHER
     Dates: start: 20030811

REACTIONS (7)
  - INCORRECT DOSE ADMINISTERED [None]
  - INJECTION SITE ATROPHY [None]
  - INJECTION SITE INDURATION [None]
  - INJECTION SITE PAIN [None]
  - INJECTION SITE REACTION [None]
  - LIPODYSTROPHY ACQUIRED [None]
  - MEDICATION ERROR [None]
